FAERS Safety Report 7484410-4 (Version None)
Quarter: 2011Q2

REPORT INFORMATION
  Report Type: 
  Country: None (occurrence: None)
  Receive Date: 20110517
  Receipt Date: 20110503
  Transmission Date: 20111010
  Serious: Yes (Other)
  Sender: FDA-Public Use
  Company Number: GB-MYLANLABS-2010S1021337

PATIENT
  Age: 46 Year
  Sex: Male

DRUGS (4)
  1. PROCYCLIDINE HYDROCHLORIDE 2MG TAB [Concomitant]
     Indication: EXTRAPYRAMIDAL DISORDER
     Route: 048
  2. VENLAFAXINE [Concomitant]
     Indication: DEPRESSION
     Route: 048
  3. CLOZARIL [Suspect]
     Indication: SCHIZOPHRENIA
     Route: 048
     Dates: start: 20080807
  4. TEMAZ [Suspect]
     Indication: ANXIETY
     Route: 048

REACTIONS (1)
  - PROSTATE CANCER [None]
